FAERS Safety Report 25148993 (Version 2)
Quarter: 2025Q2

REPORT INFORMATION
  Report Type: Spontaneous
  Country: US (occurrence: US)
  Receive Date: 20250402
  Receipt Date: 20250411
  Transmission Date: 20250717
  Serious: Yes (Other)
  Sender: RANBAXY
  Company Number: US-SUN PHARMACEUTICAL INDUSTRIES LTD-2025R1-501582

PATIENT
  Age: 23 Year
  Sex: Female

DRUGS (1)
  1. CAFFEINE [Suspect]
     Active Substance: CAFFEINE
     Indication: Product used for unknown indication
     Route: 065

REACTIONS (3)
  - Suicide attempt [Unknown]
  - Overdose [Unknown]
  - Circulatory collapse [Unknown]
